FAERS Safety Report 4565764-5 (Version None)
Quarter: 2005Q1

REPORT INFORMATION
  Report Type: 
  Country: None (occurrence: None)
  Receive Date: 20050131
  Receipt Date: 20050119
  Transmission Date: 20050727
  Serious: Yes (Hospitalization, Disabling)
  Sender: FDA-Public Use
  Company Number: JP-NOVOPROD-241774

PATIENT
  Age: 73 Year
  Sex: Male
  Weight: 65 kg

DRUGS (6)
  1. NOVORAPID CHU PENFILL [Suspect]
     Indication: INSULIN-REQUIRING TYPE II DIABETES MELLITUS
     Dosage: 28 IU, QD
     Route: 058
     Dates: start: 20031122, end: 20040401
  2. NOVORAPID CHU PENFILL [Suspect]
     Dosage: 30 IU, QD
     Dates: start: 20040402, end: 20040512
  3. NOVORAPID CHU PENFILL [Suspect]
     Dosage: 31 IU, QD
     Dates: start: 20040513, end: 20040623
  4. NOVORAPID CHU PENFILL [Suspect]
     Dosage: 34 IU, QD
     Dates: start: 20040624, end: 20040731
  5. NOVORAPID CHU PENFILL [Suspect]
     Dosage: UNK, UNK
     Dates: start: 20040801
  6. URSO 250 [Concomitant]

REACTIONS (2)
  - BRAIN STEM HAEMORRHAGE [None]
  - HEMIPLEGIA [None]
